FAERS Safety Report 5627990-3 (Version None)
Quarter: 2008Q1

REPORT INFORMATION
  Report Type: 
  Country: None (occurrence: None)
  Receive Date: 20080215
  Receipt Date: 20080205
  Transmission Date: 20080703
  Serious: Yes (Other)
  Sender: FDA-Public Use
  Company Number: US-ELI_LILLY_AND_COMPANY-US200802000978

PATIENT
  Age: 39 Year
  Sex: Female

DRUGS (2)
  1. HUMATROPE [Suspect]
     Dosage: 6 MG, UNK
     Dates: start: 20060501, end: 20071031
  2. HUMATROPE [Suspect]

REACTIONS (2)
  - ABORTION SPONTANEOUS [None]
  - DRUG EXPOSURE DURING PREGNANCY [None]
